FAERS Safety Report 7097618-7 (Version None)
Quarter: 2010Q4

REPORT INFORMATION
  Report Type: 
  Country: None (occurrence: None)
  Receive Date: 20101112
  Receipt Date: 20101104
  Transmission Date: 20110411
  Serious: Yes (Hospitalization)
  Sender: FDA-Public Use
  Company Number: US-BIOGENIDEC-2010BI029999

PATIENT
  Age: 53 Year
  Sex: Female
  Weight: 63 kg

DRUGS (18)
  1. TYSABRI [Suspect]
     Indication: MULTIPLE SCLEROSIS
     Route: 042
     Dates: start: 20090409
  2. RESTASIS [Concomitant]
     Indication: KERATOCONJUNCTIVITIS SICCA
     Route: 047
     Dates: start: 20100601
  3. SYNTHROID [Concomitant]
     Indication: HYPOTHYROIDISM
     Dosage: DOSE UNIT:75
     Route: 048
  4. ATENOLOL [Concomitant]
     Indication: HYPERTENSION
     Route: 048
  5. SIMVASTATIN [Concomitant]
     Indication: HYPERCHOLESTEROLAEMIA
     Route: 048
  6. ASCORBIC ACID [Concomitant]
     Indication: PROPHYLAXIS
  7. LOVAZA [Concomitant]
     Indication: PROPHYLAXIS
  8. LUMIGAN [Concomitant]
     Route: 047
  9. DULCOLAX [Concomitant]
  10. LIPITOR [Concomitant]
  11. AVONEX [Concomitant]
  12. METOPROLOL [Concomitant]
  13. MILK OF MAGNESIA TAB [Concomitant]
  14. MYLANTA [Concomitant]
  15. RISPERDAL [Concomitant]
  16. SEROQUEL [Concomitant]
  17. ACETAMINOPHEN [Concomitant]
  18. ZOFRAN [Concomitant]

REACTIONS (11)
  - CLAVICLE FRACTURE [None]
  - DYSARTHRIA [None]
  - FALL [None]
  - HEAD INJURY [None]
  - HYPOTHYROIDISM [None]
  - PITUITARY TUMOUR BENIGN [None]
  - PNEUMOTHORAX [None]
  - RIB FRACTURE [None]
  - SUBARACHNOID HAEMORRHAGE [None]
  - SUBCUTANEOUS EMPHYSEMA [None]
  - TRAUMATIC LUNG INJURY [None]
